FAERS Safety Report 26015436 (Version 1)
Quarter: 2025Q4

REPORT INFORMATION
  Report Type: Spontaneous
  Country: US (occurrence: US)
  Receive Date: 20251109
  Receipt Date: 20251109
  Transmission Date: 20260118
  Serious: No
  Sender: ELI LILLY AND COMPANY
  Company Number: US-ELI_LILLY_AND_COMPANY-US202510034011

PATIENT
  Age: 34 Year
  Sex: Female

DRUGS (5)
  1. ZEPBOUND [Suspect]
     Active Substance: TIRZEPATIDE
     Indication: Weight control
     Dosage: 7.5 MG, OTHER (EVERY 9 DAYS)
     Route: 065
     Dates: start: 20251006
  2. ZEPBOUND [Suspect]
     Active Substance: TIRZEPATIDE
     Indication: Weight control
     Dosage: 7.5 MG, OTHER (EVERY 9 DAYS)
     Route: 065
     Dates: start: 20251006
  3. ZEPBOUND [Suspect]
     Active Substance: TIRZEPATIDE
     Indication: Weight control
     Dosage: 7.5 MG, OTHER (EVERY 9 DAYS)
     Route: 065
     Dates: start: 20251006
  4. ZEPBOUND [Suspect]
     Active Substance: TIRZEPATIDE
     Indication: Weight control
     Dosage: 7.5 MG, OTHER (EVERY 9 DAYS)
     Route: 065
     Dates: start: 20251006
  5. NUVARING [Concomitant]
     Active Substance: ETHINYL ESTRADIOL\ETONOGESTREL
     Indication: Contraception
     Dosage: UNK
     Dates: start: 20250609

REACTIONS (6)
  - Inappropriate schedule of product administration [Unknown]
  - Eructation [Not Recovered/Not Resolved]
  - Flatulence [Not Recovered/Not Resolved]
  - Vomiting [Not Recovered/Not Resolved]
  - Diarrhoea [Not Recovered/Not Resolved]
  - Nausea [Unknown]

NARRATIVE: CASE EVENT DATE: 20251006
